FAERS Safety Report 21872025 (Version 7)
Quarter: 2023Q4

REPORT INFORMATION
  Report Type: Report from Study
  Country: IN (occurrence: IN)
  Receive Date: 20230117
  Receipt Date: 20231128
  Transmission Date: 20240110
  Serious: Yes (Death, Life-Threatening, Hospitalization)
  Sender: FDA-Public Use
  Company Number: IN-BAYER-2022A126737

PATIENT
  Age: 63 Year
  Sex: Male
  Weight: 70 kg

DRUGS (14)
  1. RIVAROXABAN [Suspect]
     Active Substance: RIVAROXABAN
     Indication: Atrial fibrillation
     Dosage: 20 MG, QD
     Route: 048
     Dates: start: 20211122, end: 20220223
  2. METOPROLOL SUCCINATE [Concomitant]
     Active Substance: METOPROLOL SUCCINATE
     Indication: Hypertension
     Dosage: 100 UG, QD
     Route: 048
     Dates: start: 20211122
  3. PRAZOSIN [Concomitant]
     Active Substance: PRAZOSIN
     Indication: Hypertension
     Dosage: 5 MG, QD
     Route: 048
     Dates: start: 20211122
  4. ROSUVASTATIN [Concomitant]
     Active Substance: ROSUVASTATIN
     Indication: Hypertension
     Dosage: 10 MG, QD
     Route: 048
     Dates: start: 20211122
  5. TORSEMIDE [Concomitant]
     Active Substance: TORSEMIDE
     Indication: Hypertension
     Dosage: 10 MG, QD
     Route: 048
     Dates: start: 20211122
  6. PREDNISOLONE [Concomitant]
     Active Substance: PREDNISOLONE
     Indication: Nephrotic syndrome
     Dosage: 5 MG, QD
     Route: 048
     Dates: start: 20211122
  7. MYCOPHENOLATE SODIUM [Concomitant]
     Active Substance: MYCOPHENOLATE SODIUM
     Indication: Chronic kidney disease
     Dosage: 360 MG, BID
     Route: 048
     Dates: start: 20211122
  8. TACROLIMUS [Concomitant]
     Active Substance: TACROLIMUS
     Indication: Chronic kidney disease
     Dosage: 0.5 MG, BID
     Route: 048
     Dates: start: 20211122
  9. LEVOCETIRIZINE;MONTELUKAST [Concomitant]
     Indication: Sinusitis fungal
     Dosage: 15 MG, QD
     Route: 048
     Dates: start: 20211122
  10. TAMSULOSIN [Concomitant]
     Active Substance: TAMSULOSIN
     Indication: Benign prostatic hyperplasia
     Dosage: 0.4 MG, QD
     Route: 048
     Dates: start: 20211122
  11. NEPHROCAPS [ASCORBIC ACID;BIOTIN;CYANOCOBALAMIN;FOLIC ACID;NICOTINAMID [Concomitant]
     Indication: Vitamin supplementation
     Dosage: 1 MG, QD
     Route: 048
     Dates: start: 20211122
  12. PANTOPRAZOLE [Concomitant]
     Active Substance: PANTOPRAZOLE
     Indication: Gastrooesophageal reflux disease
     Dosage: 40 MG, QD
     Route: 048
     Dates: start: 20211122
  13. ACETYLCYSTEINE;AMBROXOL ACEFYLLINATE [Concomitant]
     Indication: Asthma
     Dosage: 700 MG, BID
     Route: 048
     Dates: start: 20211122
  14. INSULIN NOS [Concomitant]
     Active Substance: INSULIN NOS
     Indication: Type 2 diabetes mellitus
     Dosage: 10 IU, TID
     Route: 058
     Dates: start: 20211122

REACTIONS (5)
  - Haemorrhage [Fatal]
  - Renal transplant [Unknown]
  - Coronary artery disease [Fatal]
  - Coronary artery bypass [Fatal]
  - Left ventricular dysfunction [Fatal]

NARRATIVE: CASE EVENT DATE: 20220224
